FAERS Safety Report 7599411-5 (Version None)
Quarter: 2011Q3

REPORT INFORMATION
  Report Type: 
  Country: None (occurrence: None)
  Receive Date: 20110711
  Receipt Date: 20110624
  Transmission Date: 20111222
  Serious: Yes (Hospitalization)
  Sender: FDA-Public Use
  Company Number: US-BAYER-2011-054646

PATIENT
  Age: 61 Year
  Sex: Female
  Weight: 100.9 kg

DRUGS (12)
  1. CENTRUM SILVER [Concomitant]
  2. CRESTOR [Concomitant]
     Indication: HYPERLIPIDAEMIA
  3. TRANXENE [Concomitant]
     Dosage: 3.75 MG, QD
     Dates: start: 20110603
  4. DEPAKOTE [Concomitant]
     Dosage: 500 MG, BID
     Dates: start: 20110603
  5. THIORIDAZINE HCL [Concomitant]
  6. SARGRAMOSTIM [Suspect]
     Indication: MALIGNANT MELANOMA
     Dosage: 250 MCG/DAY, DAYS 1-14 OF 21 DAY CYCLE
     Route: 058
     Dates: start: 20110510, end: 20110523
  7. TRANXENE [Concomitant]
  8. LORTAB [Concomitant]
  9. MDX-010 [Suspect]
     Indication: MALIGNANT MELANOMA
     Dosage: 10 MG/KG, DAY 1 OF 21 DAY CYCLE
     Route: 042
     Dates: start: 20110510, end: 20110510
  10. DEPAKOTE [Concomitant]
     Dosage: UNK
  11. PREVACID [Concomitant]
  12. ANAFRANIL [Concomitant]
     Dosage: UNK
     Dates: end: 20110603

REACTIONS (1)
  - DEPRESSION [None]
